FAERS Safety Report 8603615-X (Version None)
Quarter: 2012Q3

REPORT INFORMATION
  Report Type: 
  Country: None (occurrence: None)
  Receive Date: 20120817
  Receipt Date: 20120808
  Transmission Date: 20120928
  Serious: No
  Sender: FDA-Public Use
  Company Number: US-ASTRAZENECA-2012SE56827

PATIENT
  Age: 29 Year
  Sex: Female

DRUGS (14)
  1. SPIRIVA [Concomitant]
  2. CYCLOBENZAPRINE [Concomitant]
  3. DIAZEPAM [Concomitant]
  4. OXYCODONE HCL [Concomitant]
  5. NEXIUM [Suspect]
     Route: 048
     Dates: start: 20120312
  6. ATIVAN [Concomitant]
  7. BUSPAR [Concomitant]
  8. PROPRANOLOL [Concomitant]
  9. ADVAIR DISKUS 100/50 [Concomitant]
  10. NEXIUM [Suspect]
     Route: 048
  11. PYRIDOSTIGMINE BROMIDE [Concomitant]
  12. ZOLPIDEM TARTRATE [Concomitant]
  13. ASPIRIN [Concomitant]
  14. NORVASC [Concomitant]

REACTIONS (11)
  - BACK PAIN [None]
  - HYPERTENSION [None]
  - BLOOD CHOLESTEROL [None]
  - NERVOUS SYSTEM DISORDER [None]
  - ASTHMA [None]
  - HYPOGLYCAEMIA [None]
  - ARRHYTHMIA [None]
  - MYASTHENIA GRAVIS [None]
  - MUSCLE SPASMS [None]
  - PALPITATIONS [None]
  - MONONEURITIS [None]
